FAERS Safety Report 13834760 (Version 1)
Quarter: 2017Q3

REPORT INFORMATION
  Report Type: Other
  Country: GB (occurrence: GB)
  Receive Date: 20170804
  Receipt Date: 20170804
  Transmission Date: 20171127
  Serious: Yes (Other)
  Sender: FDA-Public Use
  Company Number: GB-VELOXIS PHARMACEUTICALS-2024159

PATIENT
  Age: 49 Year
  Sex: Female

DRUGS (2)
  1. FOSCARNET [Suspect]
     Active Substance: FOSCARNET
  2. ENVARSUS XR [Suspect]
     Active Substance: TACROLIMUS
     Indication: RENAL TRANSPLANT

REACTIONS (2)
  - Acute motor-sensory axonal neuropathy [Recovering/Resolving]
  - Cytomegalovirus test [Unknown]
